FAERS Safety Report 7369811-7 (Version None)
Quarter: 2011Q1

REPORT INFORMATION
  Report Type: 
  Country: None (occurrence: None)
  Receive Date: 20110323
  Receipt Date: 20110316
  Transmission Date: 20110831
  Serious: Yes (Other)
  Sender: FDA-Public Use
  Company Number: AT-ASTRAZENECA-2011SE14952

PATIENT
  Age: 66 Year
  Sex: Male

DRUGS (1)
  1. BRILIQUE [Suspect]
     Indication: ACUTE CORONARY SYNDROME
     Route: 048

REACTIONS (2)
  - THROMBOSIS IN DEVICE [None]
  - DRUG INEFFECTIVE [None]
